APPROVED DRUG PRODUCT: FUROSEMIDE
Active Ingredient: FUROSEMIDE
Strength: 20MG
Dosage Form/Route: TABLET;ORAL
Application: A071379 | Product #001
Applicant: ANI PHARMACEUTICALS INC
Approved: Jan 2, 1987 | RLD: No | RS: No | Type: DISCN